FAERS Safety Report 7456046-2 (Version None)
Quarter: 2011Q2

REPORT INFORMATION
  Report Type: 
  Country: None (occurrence: None)
  Receive Date: 20110503
  Receipt Date: 20110428
  Transmission Date: 20111010
  Serious: No
  Sender: FDA-Public Use
  Company Number: US-PFIZER INC-2011092161

PATIENT
  Sex: Female

DRUGS (10)
  1. SIMVASTATIN [Concomitant]
     Indication: BLOOD CHOLESTEROL INCREASED
     Dosage: UNK
  2. LISINOPRIL [Concomitant]
     Indication: HYPERTENSION
     Dosage: UNK
  3. KLONOPIN [Concomitant]
     Dosage: UNK
  4. WELLBUTRIN [Concomitant]
     Indication: DEPRESSION
     Dosage: UNK
  5. LAMICTAL [Concomitant]
     Dosage: UNK
  6. SEROQUEL [Concomitant]
     Dosage: UNK
  7. METOPROLOL [Concomitant]
     Dosage: UNK
  8. ACETYLSALICYLIC ACID [Concomitant]
     Indication: CARDIAC DISORDER
     Dosage: 81 MG, UNK
  9. PRISTIQ [Suspect]
     Indication: DEPRESSION
     Dosage: UNK
  10. FEMARA [Concomitant]
     Indication: NEOPLASM MALIGNANT
     Dosage: UNK

REACTIONS (3)
  - CONFUSIONAL STATE [None]
  - FATIGUE [None]
  - MALAISE [None]
